FAERS Safety Report 9043183 (Version 1)
Quarter: 2013Q1

REPORT INFORMATION
  Report Type: Report from Study
  Country: US (occurrence: US)
  Receive Date: 20130129
  Receipt Date: 20130129
  Transmission Date: 20140127
  Serious: No
  Sender: FDA-Public Use
  Company Number: US-ABBOTT-12P-163-0910996-00

PATIENT
  Sex: Male

DRUGS (3)
  1. HUMIRA 40 MG/0.8 ML PEN [Suspect]
     Indication: PSORIASIS
     Dosage: DAY 1: USE 2 INJECTIONS UNDER THE SKIN
     Dates: start: 201202, end: 201202
  2. HUMIRA 40 MG/0.8 ML PEN [Suspect]
     Dosage: DAY 8: USE 1 INJECTION AS DIRECTED
  3. HUMIRA 40 MG/0.8 ML PEN [Suspect]
     Dosage: DAY 22: USE 1 INJECTION AS DIRECTED

REACTIONS (1)
  - Fatigue [Unknown]
